FAERS Safety Report 11945888 (Version 1)
Quarter: 2016Q1

REPORT INFORMATION
  Report Type: Report from Study
  Country: HU (occurrence: HU)
  Receive Date: 20160125
  Receipt Date: 20160125
  Transmission Date: 20160526
  Serious: Yes (Hospitalization)
  Sender: FDA-Public Use
  Company Number: HU-ELI_LILLY_AND_COMPANY-HU201511000414

PATIENT
  Age: 61 Year
  Sex: Female
  Weight: 71 kg

DRUGS (15)
  1. CARBOPLATIN. [Suspect]
     Active Substance: CARBOPLATIN
     Indication: NON-SMALL CELL LUNG CANCER
     Dosage: 5 AUC ON DAY 1 OF 21-DAY CYCLE
     Route: 042
     Dates: start: 20150702
  2. RAWEL [Concomitant]
     Indication: CARDIAC FAILURE
     Dosage: 1.5 MG, QOD
     Route: 048
     Dates: start: 20121210
  3. MEDROL [Concomitant]
     Active Substance: METHYLPREDNISOLONE
     Indication: PROPHYLAXIS OF NAUSEA AND VOMITING
     Dosage: 32 MG, PRN
     Route: 048
     Dates: start: 20150701
  4. XANAX [Concomitant]
     Active Substance: ALPRAZOLAM
     Indication: DEPRESSION
     Dosage: 2 MG, QD
     Route: 048
     Dates: start: 20070312
  5. ONDANSETRON [Concomitant]
     Active Substance: ONDANSETRON
     Indication: PREMEDICATION
     Dosage: 16 MG, PRN
     Route: 042
     Dates: start: 20150702
  6. SYNCUMAR [Concomitant]
     Active Substance: ACENOCOUMAROL
     Indication: ATRIAL FIBRILLATION
     Dosage: 2 MG, QOD (ALTERNATING)
     Dates: start: 20031210
  7. SYNCUMAR [Concomitant]
     Active Substance: ACENOCOUMAROL
     Dosage: 2.5 MG, QOD (ALTERNATING)
     Route: 048
     Dates: start: 20131210
  8. FUROSEMIDE. [Concomitant]
     Active Substance: FUROSEMIDE
     Indication: CARDIAC FAILURE
     Dosage: 40 MG, QOD
     Route: 048
     Dates: start: 20060114
  9. PEMETREXED [Suspect]
     Active Substance: PEMETREXED
     Indication: NON-SMALL CELL LUNG CANCER
     Dosage: 500 MG/M2, CYCLICAL
     Route: 042
     Dates: start: 20150702
  10. ADEXOR [Concomitant]
     Indication: CARDIAC FAILURE
     Dosage: 70 MG, QD
     Route: 048
     Dates: start: 20050515
  11. NITRODERM [Concomitant]
     Active Substance: NITROGLYCERIN
     Indication: ANGINA PECTORIS
     Dosage: 5 MG, QD
     Route: 062
     Dates: start: 20060114
  12. SOLU-MEDROL [Concomitant]
     Active Substance: METHYLPREDNISOLONE SODIUM SUCCINATE
     Indication: PREMEDICATION
     Dosage: 40 MG, PRN
     Route: 042
     Dates: start: 20150702
  13. LOKREN [Concomitant]
     Active Substance: BETAXOLOL HYDROCHLORIDE
     Indication: CARDIAC FAILURE
     Dosage: 10 MG, QD
     Route: 048
     Dates: start: 20120910
  14. KALDYUM [Concomitant]
     Active Substance: POTASSIUM CHLORIDE
     Indication: ELECTROLYTE SUBSTITUTION THERAPY
     Dosage: 600 MG, QOD
     Route: 048
     Dates: start: 20060114
  15. QUAMATEL [Concomitant]
     Active Substance: FAMOTIDINE
     Indication: PREMEDICATION
     Dosage: 20 MG, PRN
     Route: 042
     Dates: start: 20150702

REACTIONS (2)
  - Thrombocytopenia [Unknown]
  - Epistaxis [Unknown]

NARRATIVE: CASE EVENT DATE: 20150924
